FAERS Safety Report 24039391 (Version 2)
Quarter: 2024Q3

REPORT INFORMATION
  Report Type: Report from Study
  Country: DE (occurrence: DE)
  Receive Date: 20240702
  Receipt Date: 20240806
  Transmission Date: 20241016
  Serious: Yes (Other)
  Sender: JOHNSON AND JOHNSON
  Company Number: DE-JNJFOC-20240701407

PATIENT
  Age: 66 Year
  Sex: Female

DRUGS (3)
  1. DARATUMUMAB [Suspect]
     Active Substance: DARATUMUMAB
     Indication: Plasma cell myeloma
     Dosage: 500
     Route: 065
     Dates: start: 20240507
  2. DARATUMUMAB [Suspect]
     Active Substance: DARATUMUMAB
     Dosage: 500
     Route: 065
     Dates: start: 20240508
  3. DARATUMUMAB [Suspect]
     Active Substance: DARATUMUMAB
     Dosage: 500
     Route: 065
     Dates: start: 20240514

REACTIONS (6)
  - Hypokalaemia [Recovered/Resolved]
  - Neutropenia [Not Recovered/Not Resolved]
  - Hypocalcaemia [Not Recovered/Not Resolved]
  - Ear discomfort [Recovered/Resolved]
  - Hyperhidrosis [Not Recovered/Not Resolved]
  - Abdominal distension [Recovered/Resolved]

NARRATIVE: CASE EVENT DATE: 20240508
